FAERS Safety Report 6657300-4 (Version None)
Quarter: 2010Q1

REPORT INFORMATION
  Report Type: 
  Country: None (occurrence: None)
  Receive Date: 20100330
  Receipt Date: 20100318
  Transmission Date: 20100710
  Serious: Yes (Hospitalization, Other)
  Sender: FDA-Public Use
  Company Number: KR-SANOFI-AVENTIS-2010SA016058

PATIENT
  Age: 23 Year
  Sex: Male

DRUGS (12)
  1. ETHAMBUTOL HYDROCHLORIDE [Suspect]
     Indication: DISSEMINATED TUBERCULOSIS
     Route: 065
  2. ETHAMBUTOL HYDROCHLORIDE [Suspect]
     Indication: PERITONITIS
     Route: 065
  3. ETHAMBUTOL HYDROCHLORIDE [Suspect]
     Indication: LYMPHADENITIS
     Route: 065
  4. ISONIAZID [Suspect]
     Indication: DISSEMINATED TUBERCULOSIS
     Route: 065
  5. ISONIAZID [Suspect]
     Indication: PERITONITIS
     Route: 065
  6. ISONIAZID [Suspect]
     Indication: LYMPHADENITIS
     Route: 065
  7. RIFAMPICIN [Suspect]
     Indication: DISSEMINATED TUBERCULOSIS
     Route: 065
  8. RIFAMPICIN [Suspect]
     Indication: PERITONITIS
     Route: 065
  9. RIFAMPICIN [Suspect]
     Indication: LYMPHADENITIS
     Route: 065
  10. PYRAZINAMIDE [Suspect]
     Indication: DISSEMINATED TUBERCULOSIS
     Route: 065
  11. PYRAZINAMIDE [Suspect]
     Indication: PERITONITIS
     Route: 065
  12. PYRAZINAMIDE [Suspect]
     Indication: LYMPHADENITIS
     Route: 065

REACTIONS (4)
  - ABDOMINAL PAIN UPPER [None]
  - HEPATIC ENZYME INCREASED [None]
  - JAUNDICE CHOLESTATIC [None]
  - TUBERCULOSIS [None]
